FAERS Safety Report 22253997 (Version 3)
Quarter: 2023Q2

REPORT INFORMATION
  Report Type: Report from Study
  Country: KR (occurrence: None)
  Receive Date: 20230426
  Receipt Date: 20230516
  Transmission Date: 20230722
  Serious: Yes (Hospitalization)
  Sender: FDA-Public Use
  Company Number: KR-Eisai Medical Research-EC-2023-133814

PATIENT
  Age: 68 Year
  Sex: Female
  Weight: 48.9 kg

DRUGS (11)
  1. LENVATINIB [Suspect]
     Active Substance: LENVATINIB
     Indication: Clear cell renal cell carcinoma
     Dosage: STARTING DOSE: 20 MG (FLUCTUATED DOSAGE)
     Route: 048
     Dates: start: 20220526, end: 20230108
  2. QUAVONLIMAB [Suspect]
     Active Substance: QUAVONLIMAB
     Indication: Clear cell renal cell carcinoma
     Dosage: QUAVONLIMAB (MK-1308) 25 MG (+) PEMBROLIZUMAB (MK-3475) 400 MG (MK-1308A)
     Route: 042
     Dates: start: 20220526, end: 20221219
  3. TANTUM [BENZYDAMINE HYDROCHLORIDE] [Concomitant]
     Route: 061
     Dates: start: 20220526
  4. NORVASC [Concomitant]
     Active Substance: AMLODIPINE BESYLATE
     Dates: start: 20220531
  5. LAFUTIDINE [Concomitant]
     Active Substance: LAFUTIDINE
     Dates: start: 20220629
  6. LAMINA-G [Concomitant]
     Dates: start: 20220629
  7. CAMOSTAT MESYLATE [Concomitant]
     Active Substance: CAMOSTAT MESYLATE
     Dates: start: 20220706, end: 20230208
  8. NORZYME [Concomitant]
     Dates: start: 20220706
  9. LEVOTHYROXINE SODIUM [Concomitant]
     Active Substance: LEVOTHYROXINE SODIUM
     Dates: start: 20221118, end: 20230330
  10. PENIRAMIN [Concomitant]
     Dates: start: 20230109, end: 20230109
  11. PEMBROLIZUMAB [Suspect]
     Active Substance: PEMBROLIZUMAB

REACTIONS (1)
  - Thrombocytopenia [Recovered/Resolved]

NARRATIVE: CASE EVENT DATE: 20230109
